FAERS Safety Report 4676570-5 (Version None)
Quarter: 2005Q2

REPORT INFORMATION
  Report Type: 
  Country: None (occurrence: None)
  Receive Date: 20050527
  Receipt Date: 20041014
  Transmission Date: 20051028
  Serious: Yes (Hospitalization)
  Sender: FDA-Public Use
  Company Number: DE-ROCHE-383226

PATIENT
  Age: 32 Year
  Sex: Male
  Weight: 73 kg

DRUGS (2)
  1. PEG-INTERFERON A-2A (RO 25-8310) [Suspect]
     Dosage: FORMULATION REPORTED AS SYRINGES.
     Route: 058
     Dates: start: 20040407, end: 20040915
  2. RIBAVIRIN [Suspect]
     Route: 065
     Dates: start: 20040415, end: 20040915

REACTIONS (1)
  - LUNG ABSCESS [None]
